FAERS Safety Report 6076202-8 (Version None)
Quarter: 2009Q1

REPORT INFORMATION
  Report Type: 
  Country: None (occurrence: None)
  Receive Date: 20090212
  Receipt Date: 20090131
  Transmission Date: 20090719
  Serious: Yes (Other)
  Sender: FDA-Public Use
  Company Number: US-PFIZER INC-2008100443

PATIENT
  Sex: Female
  Weight: 52.6 kg

DRUGS (1)
  1. GLUCOTROL XL [Suspect]
     Route: 048
     Dates: start: 20030101

REACTIONS (2)
  - BLOOD GLUCOSE INCREASED [None]
  - HYPERTENSION [None]
